FAERS Safety Report 10027640 (Version 1)
Quarter: 2014Q1

REPORT INFORMATION
  Report Type: Spontaneous
  Country: US (occurrence: None)
  Receive Date: 20140219
  Receipt Date: 20140219
  Transmission Date: 20141002
  Serious: Yes (Other)
  Sender: FDA-Public Use
  Company Number: IPC201103-000218

PATIENT
  Sex: Male

DRUGS (2)
  1. METOCLOPRAMIDE HYDROCHLORIDE [Suspect]
     Route: 048
     Dates: start: 2001, end: 2009
  2. REGLAN [Suspect]
     Route: 048
     Dates: start: 2001, end: 2009

REACTIONS (4)
  - Tardive dyskinesia [None]
  - Parkinson^s disease [None]
  - Extrapyramidal disorder [None]
  - Tremor [None]
